FAERS Safety Report 8175765-6 (Version None)
Quarter: 2012Q1

REPORT INFORMATION
  Report Type: 
  Country: None (occurrence: None)
  Receive Date: 20120228
  Receipt Date: 20120228
  Transmission Date: 20120608
  Serious: Yes (Other)
  Sender: FDA-Public Use
  Company Number: None

PATIENT
  Sex: Female

DRUGS (2)
  1. SUTENT [Suspect]
     Dosage: 25 MG DAILY ORAL
     Route: 048
     Dates: start: 20111217
  2. SUTENT [Suspect]
     Dosage: 25 MG DAILY ORAL
     Route: 048
     Dates: start: 20120108

REACTIONS (5)
  - FATIGUE [None]
  - HEADACHE [None]
  - FLUID RETENTION [None]
  - INSOMNIA [None]
  - DIARRHOEA [None]
